FAERS Safety Report 9164878 (Version 1)
Quarter: 2013Q1

REPORT INFORMATION
  Report Type: Spontaneous
  Country: IT (occurrence: IT)
  Receive Date: 20130315
  Receipt Date: 20130315
  Transmission Date: 20140127
  Serious: Yes (Death, Life-Threatening)
  Sender: FDA-Public Use
  Company Number: IT-MYLANLABS-2013S1005031

PATIENT
  Age: 90 Year
  Sex: Male

DRUGS (1)
  1. ATORVASTATIN [Suspect]
     Indication: MYOCARDIAL ISCHAEMIA
     Route: 048
     Dates: start: 20111220, end: 20130206

REACTIONS (3)
  - Asthenia [Fatal]
  - Hypertonia [Fatal]
  - Rhabdomyolysis [Fatal]
